FAERS Safety Report 4804767-X (Version None)
Quarter: 2005Q4

REPORT INFORMATION
  Report Type: 
  Country: None (occurrence: None)
  Receive Date: 20051017
  Receipt Date: 20050705
  Transmission Date: 20060501
  Serious: Yes (Death)
  Sender: FDA-Public Use
  Company Number: 805#1#2005-00051

PATIENT
  Sex: Female

DRUGS (1)
  1. ALPROSTADIL [Suspect]
     Indication: PATENT DUCTUS ARTERIOSUS
     Dosage: SEVERAL DOSE STEPS 3 - 15 NG/KG/MIN IV-G
     Route: 041
     Dates: start: 20040910

REACTIONS (3)
  - APNOEIC ATTACK [None]
  - CARDIAC FAILURE [None]
  - SHOCK [None]
